FAERS Safety Report 19197341 (Version 2)
Quarter: 2021Q2

REPORT INFORMATION
  Report Type: Report from Study
  Country: US (occurrence: US)
  Receive Date: 20210429
  Receipt Date: 20210618
  Transmission Date: 20210717
  Serious: Yes (Hospitalization, Other)
  Sender: FDA-Public Use
  Company Number: US-SHIRE-US202030502

PATIENT
  Sex: Male
  Weight: 126 kg

DRUGS (22)
  1. FAMOTIDINE. [Concomitant]
     Active Substance: FAMOTIDINE
  2. FLONASE ALLERGY RELIEF [Concomitant]
     Active Substance: FLUTICASONE PROPIONATE
  3. HYDRALAZINE [Concomitant]
     Active Substance: HYDRALAZINE HYDROCHLORIDE
  4. ELIQUIS [Concomitant]
     Active Substance: APIXABAN
  5. DULOXETINE. [Concomitant]
     Active Substance: DULOXETINE
  6. AZELASTINE. [Concomitant]
     Active Substance: AZELASTINE HYDROCHLORIDE
  7. AZITHROMYCIN AB [Concomitant]
  8. COVID?19 VACCINE [Concomitant]
  9. HUMAN IMMUNOGLOBULIN; HYALURONIDASE [Suspect]
     Active Substance: HUMAN IMMUNOGLOBULIN G\HYALURONIDASE RECOMBINANT HUMAN
     Indication: TYPE V HYPERLIPIDAEMIA
     Dosage: 30 GRAM, Q2WEEKS
     Route: 058
     Dates: start: 20170328
  10. DILTIAZEM. [Concomitant]
     Active Substance: DILTIAZEM
  11. PROAIR HFA [Concomitant]
     Active Substance: ALBUTEROL SULFATE
  12. ALLOPURINOL 1 A PHARMA [Concomitant]
  13. NORMAL SALINE [Concomitant]
     Active Substance: SODIUM CHLORIDE
  14. ACETAMINOPHEN. [Concomitant]
     Active Substance: ACETAMINOPHEN
  15. REPATHA [Concomitant]
     Active Substance: EVOLOCUMAB
  16. ADVAIR HFA [Concomitant]
     Active Substance: FLUTICASONE PROPIONATE\SALMETEROL XINAFOATE
  17. DIPHENHYDRAMINE ACEFYLLINATE [Concomitant]
  18. SINGULAIR [Concomitant]
     Active Substance: MONTELUKAST SODIUM
  19. HUMAN IMMUNOGLOBULIN; HYALURONIDASE [Suspect]
     Active Substance: HUMAN IMMUNOGLOBULIN G\HYALURONIDASE RECOMBINANT HUMAN
     Indication: IMMUNODEFICIENCY COMMON VARIABLE
     Dosage: UNK
     Route: 065
  20. CETIRIZINE [Concomitant]
     Active Substance: CETIRIZINE HYDROCHLORIDE
  21. ZETIA [Concomitant]
     Active Substance: EZETIMIBE
  22. EPINEPHRINE. [Concomitant]
     Active Substance: EPINEPHRINE

REACTIONS (2)
  - Product dose omission issue [Unknown]
  - Pneumonia [Unknown]
